FAERS Safety Report 8219573-6 (Version None)
Quarter: 2012Q1

REPORT INFORMATION
  Report Type: 
  Country: None (occurrence: None)
  Receive Date: 20120319
  Receipt Date: 20120312
  Transmission Date: 20120608
  Serious: Yes (Other)
  Sender: FDA-Public Use
  Company Number: GB-JNJFOC-20120104152

PATIENT
  Sex: Female

DRUGS (5)
  1. NICOTINE [Suspect]
     Indication: SMOKING CESSATION THERAPY
     Route: 062
     Dates: start: 20120110, end: 20120112
  2. QUETIAPINE [Concomitant]
     Indication: PSYCHOTIC DISORDER
     Dosage: IN THE EVENING
     Route: 048
  3. NICORETTE [Suspect]
     Indication: SMOKING CESSATION THERAPY
     Route: 048
  4. FLUOXETINE [Concomitant]
     Indication: PRODUCT USED FOR UNKNOWN INDICATION
     Route: 065
  5. NICOTINE [Suspect]
     Route: 062

REACTIONS (4)
  - OVERDOSE [None]
  - AGGRESSION [None]
  - PSYCHOTIC DISORDER [None]
  - DRUG INEFFECTIVE [None]
